FAERS Safety Report 26182699 (Version 1)
Quarter: 2025Q4

REPORT INFORMATION
  Report Type: Spontaneous
  Country: US (occurrence: US)
  Receive Date: 20251221
  Receipt Date: 20251221
  Transmission Date: 20260118
  Serious: Yes (Hospitalization)
  Sender: REGENERON
  Company Number: US-REGENERON PHARMACEUTICALS, INC.-2025-199534

PATIENT
  Sex: Male

DRUGS (1)
  1. LINVOSELTAMAB [Suspect]
     Active Substance: LINVOSELTAMAB
     Indication: Plasma cell myeloma
     Dosage: 200 MG

REACTIONS (1)
  - Decreased immune responsiveness [Unknown]
